FAERS Safety Report 18612002 (Version 3)
Quarter: 2021Q4

REPORT INFORMATION
  Report Type: Spontaneous
  Country: CH (occurrence: CH)
  Receive Date: 20201214
  Receipt Date: 20211006
  Transmission Date: 20220303
  Serious: Yes (Hospitalization, Other)
  Sender: FDA-Public Use
  Company Number: CH-ABBVIE-20K-151-3685412-00

PATIENT
  Age: 36 Year
  Sex: Female
  Weight: 64 kg

DRUGS (4)
  1. HUMIRA [Suspect]
     Active Substance: ADALIMUMAB
     Indication: Colitis ulcerative
     Route: 058
     Dates: start: 201505, end: 201703
  2. HUMIRA [Suspect]
     Active Substance: ADALIMUMAB
     Route: 058
     Dates: start: 202001, end: 202004
  3. HUMIRA [Suspect]
     Active Substance: ADALIMUMAB
     Route: 058
     Dates: start: 202009, end: 20201119
  4. PREDNISONE [Concomitant]
     Active Substance: PREDNISONE
     Indication: Product used for unknown indication

REACTIONS (26)
  - Generalised tonic-clonic seizure [Unknown]
  - Facial paresis [Not Recovered/Not Resolved]
  - Diarrhoea [Not Recovered/Not Resolved]
  - Deafness [Not Recovered/Not Resolved]
  - Central nervous system lesion [Recovering/Resolving]
  - Hypoaesthesia [Not Recovered/Not Resolved]
  - Cerebral disorder [Unknown]
  - Wallerian degeneration [Unknown]
  - Trismus [Not Recovered/Not Resolved]
  - Brain oedema [Unknown]
  - Vertigo [Recovered/Resolved]
  - Vision blurred [Unknown]
  - Diplopia [Recovering/Resolving]
  - Demyelination [Not Recovered/Not Resolved]
  - Headache [Unknown]
  - Nervous system disorder [Recovering/Resolving]
  - Cerebral haemorrhage [Unknown]
  - Maternal exposure during pregnancy [Unknown]
  - Mobility decreased [Recovering/Resolving]
  - Protein total increased [Unknown]
  - Dysarthria [Recovering/Resolving]
  - Enteral nutrition [Recovering/Resolving]
  - Hemiparesis [Recovering/Resolving]
  - Nystagmus [Not Recovered/Not Resolved]
  - Strabismus [Not Recovered/Not Resolved]
  - Anamnestic reaction [Not Recovered/Not Resolved]

NARRATIVE: CASE EVENT DATE: 20201101
